FAERS Safety Report 13983727 (Version 6)
Quarter: 2018Q1

REPORT INFORMATION
  Report Type: Report from Study
  Country: NL (occurrence: NL)
  Receive Date: 20170918
  Receipt Date: 20180312
  Transmission Date: 20180508
  Serious: Yes (Hospitalization)
  Sender: FDA-Public Use
  Company Number: PHHO2017NL008760

PATIENT
  Age: 17 Year
  Sex: Male
  Weight: 40 kg

DRUGS (14)
  1. DICLOFENAC [Concomitant]
     Active Substance: DICLOFENAC
     Indication: EAR PAIN
     Dosage: 25 MG, TID
     Route: 048
     Dates: start: 20151217, end: 20170616
  2. ZONEGRAN [Concomitant]
     Active Substance: ZONISAMIDE
     Indication: EPILEPSY
     Dosage: 50 MG, BID
     Route: 048
     Dates: start: 20121001
  3. MIDAZOLAM [Concomitant]
     Active Substance: MIDAZOLAM HYDROCHLORIDE
     Indication: PROPHYLAXIS
     Dosage: 2.5 MG
     Route: 045
     Dates: start: 20140903
  4. CONCERTA [Concomitant]
     Active Substance: METHYLPHENIDATE HYDROCHLORIDE
     Indication: AUTISM SPECTRUM DISORDER
     Dosage: 36 MG, QD
     Route: 048
     Dates: start: 20120423
  5. TEMAZEPAM. [Concomitant]
     Active Substance: TEMAZEPAM
     Indication: SLEEP DISORDER
     Dosage: 10 MG, PRN (1 CAPSULE)
     Route: 048
     Dates: start: 20120629
  6. RISPERIDONE. [Concomitant]
     Active Substance: RISPERIDONE
     Indication: ABNORMAL BEHAVIOUR
     Dosage: 1 MG, BID
     Route: 048
     Dates: start: 20160316
  7. EVEROLIMUS. [Suspect]
     Active Substance: EVEROLIMUS
     Indication: EPILEPSY
     Dosage: 7 NG/ML, (TROUGH 3-7 NG/ML)
     Route: 048
     Dates: start: 20140723, end: 20141218
  8. EVEROLIMUS. [Suspect]
     Active Substance: EVEROLIMUS
     Indication: EPILEPSY
     Dosage: 14 MG, 7 PILLS
     Route: 048
     Dates: start: 20170315
  9. OXCARBAZEPINE. [Concomitant]
     Active Substance: OXCARBAZEPINE
     Indication: EPILEPSY
     Dosage: 600 MG, BID
     Route: 048
     Dates: start: 20150304
  10. FENOBARB [Concomitant]
     Indication: EPILEPSY
     Dosage: 8 MG, BID
     Route: 048
     Dates: start: 20150304
  11. NUTRIDRINK [Concomitant]
     Active Substance: CARBOHYDRATES\FATTY ACIDS\MINERALS\PROTEIN\VITAMINS
     Indication: POOR FEEDING INFANT
     Dosage: 200 ML, BID
     Route: 048
     Dates: start: 20170117
  12. MELATONINE [Concomitant]
     Active Substance: MELATONIN
     Indication: SLEEP DISORDER
     Dosage: 1 MG, QD
     Route: 048
     Dates: start: 20150304
  13. PIPAMPERON [Concomitant]
     Active Substance: PIPAMPERONE HYDROCHLORIDE
     Indication: ABNORMAL BEHAVIOUR
     Dosage: 40 MG, PRN
     Route: 048
     Dates: start: 20160804
  14. FORLAX [Concomitant]
     Active Substance: POLYETHYLENE GLYCOL 4000
     Indication: CONSTIPATION PROPHYLAXIS
     Dosage: 10 MG, QD
     Route: 048
     Dates: start: 20151217

REACTIONS (1)
  - Ear infection [Recovered/Resolved]

NARRATIVE: CASE EVENT DATE: 20170517
